FAERS Safety Report 8395489-X (Version None)
Quarter: 2012Q2

REPORT INFORMATION
  Report Type: 
  Country: None (occurrence: None)
  Receive Date: 20120530
  Receipt Date: 20110425
  Transmission Date: 20120825
  Serious: No
  Sender: FDA-Public Use
  Company Number: US-GLAXOSMITHKLINE-A0924384A

PATIENT
  Age: 58 Year
  Sex: Male

DRUGS (11)
  1. CLARITIN [Concomitant]
  2. SPIRIVA [Concomitant]
  3. PRILOSEC [Concomitant]
  4. WELLBUTRIN [Concomitant]
  5. VENTOLIN [Suspect]
     Indication: CHRONIC OBSTRUCTIVE PULMONARY DISEASE
     Dosage: 1PUFF AS REQUIRED
     Route: 055
     Dates: start: 20110424
  6. RANEXA [Concomitant]
  7. PREDNISONE TAB [Concomitant]
  8. ADVAIR DISKUS 100/50 [Concomitant]
  9. LOVASTATIN [Concomitant]
  10. ENDURE [Concomitant]
  11. CLOZAPINE [Concomitant]

REACTIONS (2)
  - DRUG INEFFECTIVE [None]
  - PRODUCT QUALITY ISSUE [None]
